FAERS Safety Report 15075895 (Version 13)
Quarter: 2020Q4

REPORT INFORMATION
  Report Type: Spontaneous
  Country: US (occurrence: US)
  Receive Date: 20180627
  Receipt Date: 20201015
  Transmission Date: 20210113
  Serious: No
  Sender: FDA-Public Use
  Company Number: US-SA-2018SA134977

PATIENT

DRUGS (3)
  1. DUPIXENT [Suspect]
     Active Substance: DUPILUMAB
     Indication: DERMATITIS ATOPIC
     Dosage: UNK
     Route: 058
     Dates: start: 20170914
  2. DUPIXENT [Suspect]
     Active Substance: DUPILUMAB
     Indication: ECZEMA
  3. ALBUTEROL [SALBUTAMOL] [Concomitant]
     Active Substance: ALBUTEROL
     Indication: ASTHMA
     Dosage: UNK
     Dates: start: 2017

REACTIONS (16)
  - Hyperhidrosis [Unknown]
  - Foot fracture [Recovered/Resolved]
  - Erythema [Unknown]
  - Pruritus [Unknown]
  - Insomnia [Unknown]
  - Nausea [Unknown]
  - Abdominal pain upper [Unknown]
  - Dermatitis atopic [Unknown]
  - Unevaluable event [Not Recovered/Not Resolved]
  - Blister [Unknown]
  - Peripheral swelling [Unknown]
  - Malaise [Unknown]
  - Throat irritation [Unknown]
  - Throat clearing [Unknown]
  - Sunburn [Unknown]
  - Surgery [Unknown]

NARRATIVE: CASE EVENT DATE: 202005
